FAERS Safety Report 14706217 (Version 7)
Quarter: 2018Q2

REPORT INFORMATION
  Report Type: Spontaneous
  Country: CA (occurrence: CA)
  Receive Date: 20180402
  Receipt Date: 20180618
  Transmission Date: 20180711
  Serious: Yes (Hospitalization, Other)
  Sender: FDA-Public Use
  Company Number: CA-CELLTRION INC.-2018CA018453

PATIENT

DRUGS (7)
  1. INFLECTRA [Suspect]
     Active Substance: INFLIXIMAB-DYYB
     Dosage: 386 MG, CYCLIC, (EVERY 0,2,6 WEEKS, THEN EVERY 8 WEEKS)
     Route: 042
     Dates: start: 20180226
  2. TECTA [Concomitant]
     Active Substance: PANTOPRAZOLE MAGNESIUM
     Dosage: 40 MG
     Route: 048
  3. 6-MERCAPTOPURINE MONOHYDRATE [Concomitant]
     Active Substance: MERCAPTOPURINE
  4. PREDNISONE. [Concomitant]
     Active Substance: PREDNISONE
     Dosage: 40 MG, FOR 2 MONTHS, THEN TAPER TO 30MG
     Route: 048
     Dates: start: 201710
  5. INFLECTRA [Suspect]
     Active Substance: INFLIXIMAB-DYYB
     Dosage: 386 MG, CYCLIC, (EVERY 2,6 WEEKS)
     Route: 042
  6. INFLECTRA [Suspect]
     Active Substance: INFLIXIMAB-DYYB
     Dosage: 386 MG, CYCLIC, (EVERY 2,6 WEEKS)
     Route: 042
     Dates: start: 20180326, end: 20180326
  7. INFLECTRA [Suspect]
     Active Substance: INFLIXIMAB-DYYB
     Indication: CROHN^S DISEASE
     Dosage: 386 MG, CYCLIC, (EVERY 0,2,6 WEEKS, THEN EVERY 8 WEEKS)
     Route: 042
     Dates: start: 20180212

REACTIONS (12)
  - Pyrexia [Not Recovered/Not Resolved]
  - Fistula [Unknown]
  - Drug effect incomplete [Unknown]
  - Abscess intestinal [Unknown]
  - Product use issue [Unknown]
  - Rectal fissure [Recovering/Resolving]
  - Muscle spasms [Unknown]
  - Stoma complication [Unknown]
  - Night sweats [Recovered/Resolved]
  - Weight increased [Unknown]
  - Circumstance or information capable of leading to medication error [Unknown]
  - Body temperature fluctuation [Unknown]

NARRATIVE: CASE EVENT DATE: 20180212
